FAERS Safety Report 7458226-9 (Version None)
Quarter: 2011Q1

REPORT INFORMATION
  Report Type: 
  Country: None (occurrence: None)
  Receive Date: 20110302
  Receipt Date: 20100730
  Transmission Date: 20110831
  Serious: No
  Sender: FDA-Public Use
  Company Number: 163-21880-08041356

PATIENT
  Age: 78 Year
  Sex: Male

DRUGS (9)
  1. DEXAMETHASONE [Concomitant]
  2. ASPIRIN [Concomitant]
  3. REVLIMID [Suspect]
  4. REVLIMID [Suspect]
     Indication: MULTIPLE MYELOMA
     Dosage: SEE IMAGE
     Route: 048
     Dates: start: 20090829, end: 20090926
  5. REVLIMID [Suspect]
     Indication: MULTIPLE MYELOMA
     Dosage: SEE IMAGE
     Route: 048
     Dates: start: 20080327
  6. REVLIMID [Suspect]
     Indication: MULTIPLE MYELOMA
     Dosage: SEE IMAGE
     Route: 048
     Dates: start: 20080601, end: 20080801
  7. REVLIMID [Suspect]
     Indication: MULTIPLE MYELOMA
     Dosage: SEE IMAGE
     Route: 048
     Dates: start: 20080901
  8. REVLIMID [Suspect]
     Indication: MULTIPLE MYELOMA
     Dosage: SEE IMAGE
     Route: 048
     Dates: start: 20091003
  9. REVLIMID [Suspect]

REACTIONS (8)
  - CONSTIPATION [None]
  - NEUTROPENIA [None]
  - DIARRHOEA [None]
  - PAIN [None]
  - HAEMOGLOBIN DECREASED [None]
  - MULTIPLE MYELOMA [None]
  - WHITE BLOOD CELL COUNT DECREASED [None]
  - URINARY HESITATION [None]
